FAERS Safety Report 5009202-7 (Version None)
Quarter: 2006Q2

REPORT INFORMATION
  Report Type: 
  Country: None (occurrence: None)
  Receive Date: 20060519
  Receipt Date: 20060510
  Transmission Date: 20061013
  Serious: Yes (Other)
  Sender: FDA-Public Use
  Company Number: 2006-05-1031

PATIENT
  Age: 10 Year
  Sex: Female

DRUGS (2)
  1. LESTACAN (DESLORATADINE) SYRUP [Suspect]
     Indication: SINUSITIS
     Dosage: 1ML/0.5 QD ORAL
     Route: 048
     Dates: start: 20060316, end: 20060316
  2. TEGRETOL [Concomitant]

REACTIONS (2)
  - CONDITION AGGRAVATED [None]
  - EPILEPSY [None]
